FAERS Safety Report 23217400 (Version 1)
Quarter: 2023Q4

REPORT INFORMATION
  Report Type: Report from Study
  Country: AU (occurrence: AU)
  Receive Date: 20231122
  Receipt Date: 20231122
  Transmission Date: 20240110
  Serious: Yes (Hospitalization)
  Sender: FDA-Public Use
  Company Number: AU-Eisai Medical Research-EC-2023-143312

PATIENT
  Age: 71 Year
  Sex: Male
  Weight: 115.3 kg

DRUGS (15)
  1. LENVATINIB [Suspect]
     Active Substance: LENVATINIB
     Indication: Clear cell renal cell carcinoma
     Route: 048
     Dates: start: 20220831
  2. PEMBROLIZUMAB [Suspect]
     Active Substance: PEMBROLIZUMAB
     Indication: Clear cell renal cell carcinoma
     Route: 041
     Dates: start: 20220831, end: 20221019
  3. PEMBROLIZUMAB [Suspect]
     Active Substance: PEMBROLIZUMAB
     Route: 041
     Dates: start: 20221130
  4. RYZODEG 70/30 [Concomitant]
     Active Substance: INSULIN ASPART\INSULIN DEGLUDEC
     Dates: start: 200501
  5. SERTRALINE HYDROCHLORIDE [Concomitant]
     Active Substance: SERTRALINE HYDROCHLORIDE
     Dates: start: 20100910
  6. RIVAROXABAN [Concomitant]
     Active Substance: RIVAROXABAN
     Dates: start: 20221013
  7. ATENOLOL [Concomitant]
     Active Substance: ATENOLOL
     Dates: start: 20221018
  8. IRBESARTAN [Concomitant]
     Active Substance: IRBESARTAN
     Dates: start: 20130724, end: 20221013
  9. SODIUM CHLORIDE [Concomitant]
     Active Substance: SODIUM CHLORIDE
     Dates: start: 20221013, end: 20221013
  10. LORATADINE [Concomitant]
     Active Substance: LORATADINE
     Dates: start: 20220913, end: 20221014
  11. ALBUMIN HUMAN [Concomitant]
     Active Substance: ALBUMIN HUMAN
     Dates: start: 20221013, end: 20221013
  12. DIAZEPAM [Concomitant]
     Active Substance: DIAZEPAM
     Dates: start: 20060530
  13. JARDIANCE [Concomitant]
     Active Substance: EMPAGLIFLOZIN
     Dates: start: 20190624
  14. LIPITOR [Concomitant]
     Active Substance: ATORVASTATIN CALCIUM
     Dates: start: 20080116
  15. METFORMIN [Concomitant]
     Active Substance: METFORMIN HYDROCHLORIDE
     Dates: start: 20080825

REACTIONS (1)
  - Adrenal insufficiency [Not Recovered/Not Resolved]

NARRATIVE: CASE EVENT DATE: 20221024
